FAERS Safety Report 5481457-4 (Version None)
Quarter: 2007Q4

REPORT INFORMATION
  Report Type: 
  Country: None (occurrence: None)
  Receive Date: 20071010
  Receipt Date: 20071003
  Transmission Date: 20080405
  Serious: Yes (Hospitalization, Other)
  Sender: FDA-Public Use
  Company Number: US-JNJFOC-20070904869

PATIENT
  Sex: Male
  Weight: 75.75 kg

DRUGS (8)
  1. LEVAQUIN [Suspect]
     Indication: DIVERTICULITIS
     Route: 048
  2. VYTORIN [Concomitant]
     Indication: BLOOD CHOLESTEROL
     Route: 065
  3. B-BLOCKER [Concomitant]
     Route: 065
  4. PLAVIX [Concomitant]
     Indication: CARDIAC DISORDER
     Route: 065
  5. PREVACID [Concomitant]
     Indication: GASTROINTESTINAL DISORDER
     Route: 065
  6. LOPRESSOR [Concomitant]
     Indication: BLOOD PRESSURE
     Route: 065
  7. ALTACE [Concomitant]
     Indication: BLOOD PRESSURE
     Route: 065
  8. ASPIRIN [Concomitant]
     Indication: THROMBOSIS PROPHYLAXIS
     Route: 065

REACTIONS (4)
  - ANXIETY [None]
  - ATRIAL FIBRILLATION [None]
  - FEELING JITTERY [None]
  - PALPITATIONS [None]
